FAERS Safety Report 9093588 (Version 1)
Quarter: 2013Q1

REPORT INFORMATION
  Report Type: Spontaneous
  Country: US (occurrence: US)
  Receive Date: 20130201
  Receipt Date: 20130201
  Transmission Date: 20140127
  Serious: Yes (Hospitalization)
  Sender: FDA-Public Use
  Company Number: US-ASTRAZENECA-2013SE05457

PATIENT
  Age: 13 Year
  Sex: Male
  Weight: 90.7 kg

DRUGS (3)
  1. NEXIUM [Suspect]
     Route: 048
  2. LOVAZA [Interacting]
     Indication: BLOOD TRIGLYCERIDES INCREASED
     Route: 065
     Dates: start: 2012
  3. ACTIGALL [Interacting]
     Route: 065

REACTIONS (5)
  - Drug interaction [Unknown]
  - Delusion [Unknown]
  - Anxiety [Unknown]
  - Paranoia [Unknown]
  - Confusional state [Unknown]
